FAERS Safety Report 7212827-1 (Version None)
Quarter: 2011Q1

REPORT INFORMATION
  Report Type: 
  Country: None (occurrence: None)
  Receive Date: 20110106
  Receipt Date: 20101231
  Transmission Date: 20110831
  Serious: Yes (Hospitalization, Other)
  Sender: FDA-Public Use
  Company Number: US-ALEXION-A201001675

PATIENT
  Sex: Male

DRUGS (13)
  1. VICODIN [Concomitant]
  2. SOLIRIS [Suspect]
     Indication: PAROXYSMAL NOCTURNAL HAEMOGLOBINURIA
     Dosage: UNK
     Route: 042
  3. FOLIC ACID [Concomitant]
  4. FLOMAX [Concomitant]
  5. AMBIEN [Concomitant]
  6. CITALOPRAM [Concomitant]
  7. ASPIRIN [Concomitant]
  8. PRILOSEC [Concomitant]
  9. DOXASIN [Concomitant]
  10. EXJADE [Concomitant]
  11. IRON [Concomitant]
  12. PREDNISONE [Concomitant]
  13. PHOSLO [Concomitant]

REACTIONS (4)
  - SEPSIS [None]
  - PNEUMONIA [None]
  - BLOOD PRESSURE DECREASED [None]
  - DIALYSIS [None]
